FAERS Safety Report 5444734-9 (Version None)
Quarter: 2007Q3

REPORT INFORMATION
  Report Type: 
  Country: None (occurrence: None)
  Receive Date: 20070906
  Receipt Date: 20070226
  Transmission Date: 20080115
  Serious: No
  Sender: FDA-Public Use
  Company Number: A0640947A

PATIENT
  Age: 69 Year
  Sex: Female

DRUGS (3)
  1. REQUIP [Suspect]
     Indication: RESTLESS LEGS SYNDROME
     Dosage: 2MG PER DAY
     Route: 048
  2. INDAPAMIDE [Concomitant]
  3. PREVACID [Concomitant]

REACTIONS (2)
  - DIZZINESS [None]
  - NAUSEA [None]
